FAERS Safety Report 5119077-3 (Version None)
Quarter: 2006Q3

REPORT INFORMATION
  Report Type: 
  Country: None (occurrence: None)
  Receive Date: 20060927
  Receipt Date: 20060920
  Transmission Date: 20061208
  Serious: Yes (Other)
  Sender: FDA-Public Use
  Company Number: 2006112858

PATIENT
  Sex: Male

DRUGS (1)
  1. VISINE L.R. [Suspect]
     Dosage: ONCE, ORAL
     Route: 048
     Dates: start: 20060920, end: 20060920

REACTIONS (3)
  - ACCIDENTAL EXPOSURE [None]
  - ILL-DEFINED DISORDER [None]
  - INCORRECT ROUTE OF DRUG ADMINISTRATION [None]
